FAERS Safety Report 5489156-X (Version None)
Quarter: 2007Q3

REPORT INFORMATION
  Report Type: 
  Country: None (occurrence: None)
  Receive Date: 20070925
  Receipt Date: 20070615
  Transmission Date: 20080115
  Serious: No
  Sender: FDA-Public Use
  Company Number: 2007US001216

PATIENT
  Age: 82 Year
  Sex: Male

DRUGS (5)
  1. VESICARE [Suspect]
     Indication: POLLAKIURIA
     Dosage: 10 MG, UID/QD, ORAL
     Route: 048
     Dates: start: 20070301
  2. VESICARE [Suspect]
     Indication: POLLAKIURIA
     Dosage: 10 MG, UID/QD, ORAL
     Route: 048
     Dates: start: 20070502
  3. NORVASC [Concomitant]
  4. SIMVASTATIN [Concomitant]
  5. OMEPRAZOLE [Concomitant]

REACTIONS (1)
  - DRY MOUTH [None]
